FAERS Safety Report 21362962 (Version 2)
Quarter: 2023Q1

REPORT INFORMATION
  Report Type: Spontaneous
  Country: US (occurrence: US)
  Receive Date: 20220922
  Receipt Date: 20230113
  Transmission Date: 20230418
  Serious: No
  Sender: FDA-Public Use
  Company Number: US-PHARMAESSENTIA CORPORATION-US-2022-PEC-000714

PATIENT

DRUGS (2)
  1. BESREMI [Suspect]
     Active Substance: ROPEGINTERFERON ALFA-2B-NJFT
     Indication: Polycythaemia vera
     Dosage: 100 MCG, Q2W
     Route: 058
     Dates: start: 20220622
  2. BESREMI [Suspect]
     Active Substance: ROPEGINTERFERON ALFA-2B-NJFT
     Dosage: UNK, Q2W
     Route: 058

REACTIONS (7)
  - Intentional dose omission [Unknown]
  - Therapy interrupted [Unknown]
  - Platelet count decreased [Not Recovered/Not Resolved]
  - Injection site inflammation [Unknown]
  - Injection site erythema [Unknown]
  - Pruritus [Not Recovered/Not Resolved]
  - Fatigue [Unknown]
